FAERS Safety Report 10168328 (Version 1)
Quarter: 2014Q2

REPORT INFORMATION
  Report Type: Spontaneous
  Country: BR (occurrence: BR)
  Receive Date: 20140512
  Receipt Date: 20140512
  Transmission Date: 20141212
  Serious: Yes (Other)
  Sender: FDA-Public Use
  Company Number: PHHY2014BR056832

PATIENT
  Age: 8 Year
  Sex: Female
  Weight: 40 kg

DRUGS (1)
  1. VOLTAREN [Suspect]
     Indication: HEADACHE
     Dosage: (1 FLASK UNIQUE DOSE), ONCE
     Route: 030
     Dates: start: 20140414

REACTIONS (4)
  - Furuncle [Not Recovered/Not Resolved]
  - Application site haemorrhage [Not Recovered/Not Resolved]
  - Application site swelling [Not Recovered/Not Resolved]
  - Application site discolouration [Not Recovered/Not Resolved]
